FAERS Safety Report 21502194 (Version 1)
Quarter: 2022Q4

REPORT INFORMATION
  Report Type: Spontaneous
  Country: AT (occurrence: AT)
  Receive Date: 20221025
  Receipt Date: 20221025
  Transmission Date: 20230113
  Serious: Yes (Other)
  Sender: FDA-Public Use
  Company Number: AT-NOVARTISPH-NVSC2022AT237642

PATIENT
  Sex: Female

DRUGS (3)
  1. EVEROLIMUS [Suspect]
     Active Substance: EVEROLIMUS
     Indication: Bile duct cancer
     Dosage: UNK
     Route: 048
  2. EVEROLIMUS [Suspect]
     Active Substance: EVEROLIMUS
     Indication: Immunosuppression
  3. EXEMESTANE [Suspect]
     Active Substance: EXEMESTANE
     Indication: Bile duct cancer
     Dosage: UNK
     Route: 065

REACTIONS (4)
  - Bile duct cancer [Unknown]
  - Malignant neoplasm progression [Unknown]
  - Treatment failure [Unknown]
  - Product use in unapproved indication [Unknown]
